FAERS Safety Report 7273409-9 (Version None)
Quarter: 2011Q1

REPORT INFORMATION
  Report Type: 
  Country: None (occurrence: None)
  Receive Date: 20110203
  Receipt Date: 20100908
  Transmission Date: 20110831
  Serious: No
  Sender: FDA-Public Use
  Company Number: US-ABBOTT-10P-163-0670597-00

PATIENT
  Sex: Female

DRUGS (3)
  1. SYNTHROID [Suspect]
     Indication: THYROIDECTOMY
     Route: 048
     Dates: start: 20091101, end: 20100601
  2. SYNTHROID [Suspect]
     Route: 048
     Dates: start: 20100831
  3. SYNTHROID [Suspect]
     Route: 048
     Dates: start: 20100601, end: 20100830

REACTIONS (2)
  - PARAESTHESIA [None]
  - HYPOAESTHESIA [None]
